FAERS Safety Report 16048102 (Version 1)
Quarter: 2019Q1

REPORT INFORMATION
  Report Type: Report from Study
  Country: CA (occurrence: CA)
  Receive Date: 20190307
  Receipt Date: 20190307
  Transmission Date: 20190418
  Serious: Yes (Hospitalization)
  Sender: FDA-Public Use
  Company Number: CA-AMGEN-CANCT2019037337

PATIENT
  Age: 58 Year
  Sex: Female

DRUGS (1)
  1. AIMOVIG [Suspect]
     Active Substance: ERENUMAB-AOOE
     Indication: MIGRAINE
     Dosage: UNK
     Route: 065
     Dates: start: 20181220

REACTIONS (6)
  - Eye pain [Unknown]
  - Paraesthesia [Unknown]
  - Headache [Unknown]
  - Malaise [Unknown]
  - Photophobia [Unknown]
  - Hypoaesthesia [Unknown]
